FAERS Safety Report 22319418 (Version 1)
Quarter: 2023Q2

REPORT INFORMATION
  Report Type: Spontaneous
  Country: CN (occurrence: CN)
  Receive Date: 20230515
  Receipt Date: 20230515
  Transmission Date: 20230722
  Serious: Yes (Other)
  Sender: FDA-Public Use
  Company Number: None

PATIENT
  Age: 6 Decade
  Sex: Male

DRUGS (14)
  1. PREDNISONE [Suspect]
     Active Substance: PREDNISONE
     Indication: Cutaneous T-cell lymphoma
     Dosage: 500 MG 1 CYCLE (100 MG DAY 1-5 (CVP ))
     Dates: start: 201908
  2. PREDNISONE [Suspect]
     Active Substance: PREDNISONE
     Dosage: 500 MG 1 CYCLE (100 MG DAY 1-5 (CHOPE))
     Dates: start: 201908
  3. PREDNISONE [Suspect]
     Active Substance: PREDNISONE
     Dosage: 6000 MG 2 TIMES PER DAY (100 MG DAY 1-5)
  4. DEXAMETHASONE [Suspect]
     Active Substance: DEXAMETHASONE
     Indication: Cutaneous T-cell lymphoma
     Dosage: 40 MG DAY 1-4
  5. OXALIPLATIN [Suspect]
     Active Substance: OXALIPLATIN
     Indication: Cutaneous T-cell lymphoma
     Dosage: 250 MG EVERY 1 CYCLE DAY 1
  6. CYCLOPHOSPHAMIDE [Suspect]
     Active Substance: CYCLOPHOSPHAMIDE
     Indication: Cutaneous T-cell lymphoma
     Dosage: 1200 MG EVERY 1 CYCLE DAY 1(CHOPE )
  7. CYCLOPHOSPHAMIDE [Suspect]
     Active Substance: CYCLOPHOSPHAMIDE
     Dosage: 24000 MG EVERY 12 CYCLE (400 MG DAY 1-5(COP)
     Dates: start: 2018
  8. CYCLOPHOSPHAMIDE [Suspect]
     Active Substance: CYCLOPHOSPHAMIDE
     Dosage: 1200 MG EVERY 1 CYCLE  DAY 1(CVP)
     Dates: start: 201908
  9. CYTARABINE [Suspect]
     Active Substance: CYTARABINE
     Indication: Cutaneous T-cell lymphoma
     Dosage: 3300 MG EVEBRY 1 CYCLE DAY 2
  10. DOXORUBICIN [Suspect]
     Active Substance: DOXORUBICIN
     Indication: Cutaneous T-cell lymphoma
     Dosage: 80 MG EVERY 1 CYCLE DAY 1
  11. ETOPOSIDE [Suspect]
     Active Substance: ETOPOSIDE
     Indication: Cutaneous T-cell lymphoma
     Dosage: 100 MG EVERY 1 CYCLE DAY 1-3
  12. VINCRISTINE [Suspect]
     Active Substance: VINCRISTINE
     Indication: Cutaneous T-cell lymphoma
     Dosage: 24 MG EVERY 12 CYCLE (2 MG DAY 1 (COP))
     Dates: start: 2018
  13. VINCRISTINE [Suspect]
     Active Substance: VINCRISTINE
     Dosage: 2 MG DAY EVERY 1 CYCLE 1 (CVP )
  14. VINCRISTINE [Suspect]
     Active Substance: VINCRISTINE
     Dosage: 2 MG DAY 1 (CHOPE)

REACTIONS (2)
  - Myelosuppression [Unknown]
  - Infection [Unknown]
